FAERS Safety Report 9704222 (Version 1)
Quarter: 2013Q4

REPORT INFORMATION
  Report Type: Spontaneous
  Country: US (occurrence: None)
  Receive Date: 20131121
  Receipt Date: 20131121
  Transmission Date: 20140711
  Serious: Yes (Life-Threatening)
  Sender: FDA-Public Use
  Company Number: None

PATIENT
  Age: 36 Year
  Sex: Male
  Weight: 74.84 kg

DRUGS (1)
  1. CEFTAROLINE [Suspect]
     Indication: ENDOCARDITIS STAPHYLOCOCCAL
     Route: 042
     Dates: start: 20130904, end: 20131026

REACTIONS (1)
  - Neutropenia [None]
